FAERS Safety Report 21268257 (Version 1)
Quarter: 2022Q3

REPORT INFORMATION
  Report Type: Spontaneous
  Country: JP (occurrence: JP)
  Receive Date: 20220830
  Receipt Date: 20220830
  Transmission Date: 20221027
  Serious: Yes (Other)
  Sender: FDA-Public Use
  Company Number: JP-BAXTER-2022BAX018391

PATIENT
  Age: 80 Year
  Sex: Male

DRUGS (1)
  1. CYCLOPHOSPHAMIDE [Suspect]
     Active Substance: CYCLOPHOSPHAMIDE
     Indication: Product used for unknown indication
     Dosage: 50 MG
     Route: 048

REACTIONS (6)
  - Pharyngeal stenosis [Unknown]
  - Pollakiuria [Recovering/Resolving]
  - Bladder dilatation [Unknown]
  - Dyspnoea [Unknown]
  - Anaemia [Unknown]
  - Malaise [Unknown]
